FAERS Safety Report 13548098 (Version 1)
Quarter: 2017Q2

REPORT INFORMATION
  Report Type: Spontaneous
  Country: US (occurrence: US)
  Receive Date: 20170516
  Receipt Date: 20170516
  Transmission Date: 20170830
  Serious: Yes (Other)
  Sender: FDA-Public Use
  Company Number: US-SHIRE-US201710164

PATIENT
  Age: 49 Year
  Sex: Male

DRUGS (1)
  1. 433 (CARBAMAZEPINE) [Suspect]
     Active Substance: CARBAMAZEPINE
     Indication: TRIGEMINAL NEURALGIA
     Dosage: UNK, UNKNOWN
     Route: 048

REACTIONS (2)
  - Lyme disease [Unknown]
  - Sensory disturbance [Unknown]
